FAERS Safety Report 24547588 (Version 1)
Quarter: 2024Q4

REPORT INFORMATION
  Report Type: Spontaneous
  Country: IT (occurrence: IT)
  Receive Date: 20241025
  Receipt Date: 20241025
  Transmission Date: 20250114
  Serious: Yes (Other)
  Sender: ACCORD
  Company Number: None

PATIENT
  Age: 76 Year
  Sex: Male

DRUGS (1)
  1. IRINOTECAN [Suspect]
     Active Substance: IRINOTECAN
     Indication: Adenocarcinoma pancreas
     Dosage: 333 MG (DRUG SUSPENDED)
     Dates: start: 20240819, end: 20240819

REACTIONS (3)
  - Chest pain [Recovered/Resolved]
  - Hyperhidrosis [Recovered/Resolved]
  - Extrasystoles [Recovered/Resolved]

NARRATIVE: CASE EVENT DATE: 20240819
